FAERS Safety Report 12691240 (Version 6)
Quarter: 2017Q3

REPORT INFORMATION
  Report Type: Report from Study
  Country: None (occurrence: CA)
  Receive Date: 20160826
  Receipt Date: 20170929
  Transmission Date: 20171127
  Serious: Yes (Hospitalization, Disabling, Other)
  Sender: FDA-Public Use
  Company Number: CA-ABBVIE-16K-028-1708433-00

PATIENT
  Age: 52 Year
  Sex: Male
  Weight: 126 kg

DRUGS (3)
  1. HUMIRA [Suspect]
     Active Substance: ADALIMUMAB
     Dosage: LOADING DOSE, RESTARTED ABOUT ONE MONTH AGO
     Route: 058
     Dates: start: 2016, end: 2016
  2. HUMIRA [Suspect]
     Active Substance: ADALIMUMAB
     Indication: CROHN^S DISEASE
     Route: 058
     Dates: start: 20140104, end: 20160524
  3. HUMIRA [Suspect]
     Active Substance: ADALIMUMAB
     Route: 058
     Dates: start: 2016

REACTIONS (6)
  - Post procedural discharge [Recovered/Resolved]
  - Post procedural infection [Unknown]
  - Post procedural fistula [Recovered/Resolved]
  - Postoperative abscess [Not Recovered/Not Resolved]
  - Intestinal obstruction [Recovering/Resolving]
  - Infected fistula [Recovered/Resolved]

NARRATIVE: CASE EVENT DATE: 2016
